FAERS Safety Report 4343531-5 (Version None)
Quarter: 2004Q2

REPORT INFORMATION
  Report Type: 
  Country: None (occurrence: None)
  Receive Date: 20040419
  Receipt Date: 20040412
  Transmission Date: 20050107
  Serious: Yes (Other)
  Sender: FDA-Public Use
  Company Number: 2004208873US

PATIENT
  Age: 62 Year
  Sex: Female

DRUGS (4)
  1. BEXTRA [Suspect]
     Indication: LIMB INJURY
     Dosage: 10 MG, QD
     Dates: start: 20040408, end: 20040411
  2. INDERAL [Concomitant]
  3. DOXEPIN (DOXEPIN) [Concomitant]
  4. PREMARIN [Concomitant]

REACTIONS (1)
  - BLINDNESS [None]
